FAERS Safety Report 12836539 (Version 2)
Quarter: 2016Q4

REPORT INFORMATION
  Report Type: Spontaneous
  Country: US (occurrence: US)
  Receive Date: 20161011
  Receipt Date: 20161011
  Transmission Date: 20170207
  Serious: No
  Sender: FDA-Public Use
  Company Number: US-TEVA-699285USA

PATIENT
  Sex: Male
  Weight: 94.43 kg

DRUGS (1)
  1. NYSTATIN. [Suspect]
     Active Substance: NYSTATIN

REACTIONS (3)
  - Drug prescribing error [None]
  - Drug dispensing error [Unknown]
  - Intentional product use issue [None]
